FAERS Safety Report 9589949 (Version 1)
Quarter: 2013Q4

REPORT INFORMATION
  Report Type: Spontaneous
  Country: US (occurrence: US)
  Receive Date: 20131003
  Receipt Date: 20131003
  Transmission Date: 20140711
  Serious: No
  Sender: FDA-Public Use
  Company Number: US-AMGEN-USASP2012073573

PATIENT
  Age: 60 Year
  Sex: Female
  Weight: 75.28 kg

DRUGS (12)
  1. ENBREL [Suspect]
     Indication: RHEUMATOID ARTHRITIS
     Dosage: 50 MG, QWK
     Route: 058
  2. CYMBALTA [Concomitant]
     Dosage: 30 MG, UNK
  3. XANAX [Concomitant]
     Dosage: 1 MG, UNK
  4. AMBIEN CR [Concomitant]
     Dosage: 12.5 MG, UNK
  5. ESTROGEL [Concomitant]
     Dosage: UNK
  6. VITAMIN C                          /00008001/ [Concomitant]
     Dosage: 1000 MG, UNK
  7. SKELAXINE [Concomitant]
     Dosage: 800 MG, UNK
  8. OXYCODONE [Concomitant]
     Dosage: 10 MG, UNK
  9. ALEVE [Concomitant]
     Dosage: 220 MG, UNK
  10. PROGESTERONE [Concomitant]
     Dosage: UNK
  11. CALCIUM +D                         /00944201/ [Concomitant]
     Dosage: UNK
  12. MULTIVITAMINS, PLAIN [Concomitant]
     Dosage: UNK

REACTIONS (1)
  - Nasopharyngitis [Unknown]
